FAERS Safety Report 24972196 (Version 2)
Quarter: 2025Q3

REPORT INFORMATION
  Report Type: Spontaneous
  Country: US (occurrence: None)
  Receive Date: 20250214
  Receipt Date: 20250816
  Transmission Date: 20251021
  Serious: Yes (Other)
  Sender: ALEXION PHARMACEUTICALS
  Company Number: US-AstraZeneca-2011SE44314

PATIENT
  Age: 50 Year
  Sex: Female

DRUGS (1)
  1. NEXIUM [Suspect]
     Active Substance: ESOMEPRAZOLE MAGNESIUM

REACTIONS (6)
  - Ear congestion [Unknown]
  - Hypoacusis [Unknown]
  - Burning sensation [Unknown]
  - Bronchitis [Unknown]
  - Nasopharyngitis [Unknown]
  - Immunodeficiency [Unknown]
